FAERS Safety Report 15483729 (Version 2)
Quarter: 2018Q4

REPORT INFORMATION
  Report Type: Spontaneous
  Country: US (occurrence: US)
  Receive Date: 20181010
  Receipt Date: 20181101
  Transmission Date: 20190205
  Serious: Yes (Other)
  Sender: FDA-Public Use
  Company Number: US-PFIZER INC-2018404628

PATIENT
  Age: 54 Year
  Sex: Male

DRUGS (2)
  1. DILANTIN [PHENYTOIN SODIUM] [Concomitant]
     Indication: SEIZURE
     Dosage: UNK
     Dates: start: 1989
  2. LYRICA [Suspect]
     Active Substance: PREGABALIN
     Indication: SEIZURE
     Dosage: 300 MG, 2X/DAY
     Dates: start: 1997

REACTIONS (2)
  - Malaise [Unknown]
  - Drug dependence [Unknown]
